FAERS Safety Report 21653671 (Version 1)
Quarter: 2022Q4

REPORT INFORMATION
  Report Type: Spontaneous
  Country: ES (occurrence: ES)
  Receive Date: 20221129
  Receipt Date: 20221129
  Transmission Date: 20230113
  Serious: Yes (Hospitalization, Other)
  Sender: FDA-Public Use
  Company Number: ES-ALKEM LABORATORIES LIMITED-ES-ALKEM-2022-13190

PATIENT
  Age: 13 Year
  Sex: Female

DRUGS (3)
  1. MORPHINE SULFATE [Suspect]
     Active Substance: MORPHINE SULFATE
     Indication: Product used for unknown indication
     Dosage: 300 MILLIGRAM (17 H PRIOR WITH SUICIDAL INTENT)
     Route: 065
  2. TRAMADOL [Suspect]
     Active Substance: TRAMADOL
     Indication: Product used for unknown indication
     Dosage: UNK
     Route: 065
  3. DULOXETINE [Concomitant]
     Active Substance: DULOXETINE
     Indication: Product used for unknown indication
     Dosage: 600 MILLIGRAM
     Route: 065

REACTIONS (13)
  - Depressed level of consciousness [Unknown]
  - Respiratory depression [Unknown]
  - Suicide attempt [Unknown]
  - Urinary retention [Recovered/Resolved]
  - Abdominal pain [Unknown]
  - Headache [Unknown]
  - Hyperamylasaemia [Unknown]
  - Leukocytosis [Unknown]
  - Miosis [Unknown]
  - Somnolence [Unknown]
  - Vomiting [Unknown]
  - Troponin I increased [Unknown]
  - Overdose [Unknown]
